FAERS Safety Report 24416180 (Version 2)
Quarter: 2024Q4

REPORT INFORMATION
  Report Type: Spontaneous
  Country: CZ (occurrence: CZ)
  Receive Date: 20241009
  Receipt Date: 20241112
  Transmission Date: 20250115
  Serious: No
  Sender: NOVARTIS
  Company Number: CZ-002147023-NVSC2024CZ190164

PATIENT
  Sex: Male

DRUGS (3)
  1. GILENYA [Suspect]
     Active Substance: FINGOLIMOD HYDROCHLORIDE
     Indication: Relapsing-remitting multiple sclerosis
     Dosage: UNK
     Route: 065
     Dates: start: 201606, end: 202403
  2. OFATUMUMAB [Concomitant]
     Active Substance: OFATUMUMAB
     Indication: Product used for unknown indication
     Dosage: UNK (DOSING INTERVAL EVERY 6 WEEKS)
     Route: 065
  3. VITAMIN D [Concomitant]
     Active Substance: VITAMIN D NOS
     Indication: Product used for unknown indication
     Dosage: 2000 IU, QD
     Route: 065

REACTIONS (6)
  - Liver disorder [Unknown]
  - Molluscum contagiosum [Recovering/Resolving]
  - Erythema migrans [Unknown]
  - Decreased activity [Unknown]
  - Mental fatigue [Unknown]
  - Abscess [Recovering/Resolving]

NARRATIVE: CASE EVENT DATE: 20190101
